FAERS Safety Report 25908585 (Version 2)
Quarter: 2025Q4

REPORT INFORMATION
  Report Type: Spontaneous
  Country: AR (occurrence: AR)
  Receive Date: 20251010
  Receipt Date: 20251027
  Transmission Date: 20260118
  Serious: Yes (Hospitalization)
  Sender: BIOMARIN
  Company Number: AR-BIOMARINAP-AR-2025-169294

PATIENT
  Age: 17 Year
  Sex: Female
  Weight: 54 kg

DRUGS (2)
  1. VIMIZIM [Suspect]
     Active Substance: ELOSULFASE ALFA
     Indication: Mucopolysaccharidosis IV
     Dosage: 2 MILLIGRAM/KILOGRAM, QW
     Dates: start: 2014
  2. ACETYLCYSTEINE [Concomitant]
     Active Substance: ACETYLCYSTEINE
     Indication: Product used for unknown indication

REACTIONS (6)
  - Nasopharyngitis [Recovered/Resolved]
  - Oxygen saturation decreased [Recovered/Resolved]
  - Heart rate increased [Recovered/Resolved]
  - Choking sensation [Recovering/Resolving]
  - Asthma [Recovering/Resolving]
  - Dyspnoea [Recovered/Resolved]

NARRATIVE: CASE EVENT DATE: 20251004
